FAERS Safety Report 21056382 (Version 2)
Quarter: 2022Q3

REPORT INFORMATION
  Report Type: Report from Study
  Country: JP (occurrence: JP)
  Receive Date: 20220708
  Receipt Date: 20220711
  Transmission Date: 20221027
  Serious: Yes (Hospitalization)
  Sender: FDA-Public Use
  Company Number: JP-CHUGAI-2022025614

PATIENT
  Age: 49 Year
  Sex: Female
  Weight: 44.9 kg

DRUGS (13)
  1. ATEZOLIZUMAB [Suspect]
     Active Substance: ATEZOLIZUMAB
     Indication: Breast cancer
     Dosage: 840 MILLIGRAM,DAY1,DAY15
     Route: 042
     Dates: start: 20220208
  2. PACLITAXEL [Concomitant]
     Active Substance: PACLITAXEL
     Indication: Breast cancer
     Dosage: 65 MILLIGRAM/SQ. METER,DAY1,DAY8,DAY15
     Route: 042
     Dates: start: 20220208
  3. PACLITAXEL [Concomitant]
     Active Substance: PACLITAXEL
     Dosage: 65 MILLIGRAM/SQ. METER
     Route: 042
  4. AVASTIN [Concomitant]
     Active Substance: BEVACIZUMAB
     Indication: Breast cancer
     Dosage: 10 MILLIGRAM/KILOGRAM,DAY1,DAY15
     Route: 042
     Dates: start: 20220208
  5. CRESTOR [Concomitant]
     Active Substance: ROSUVASTATIN CALCIUM
     Indication: Dyslipidaemia
     Dosage: 2.5 MILLIGRAM, QD
     Route: 048
     Dates: end: 20220627
  6. CALCIUM CARBONATE\CHOLECALCIFEROL\MAGNESIUM CARBONATE [Concomitant]
     Active Substance: CALCIUM CARBONATE\CHOLECALCIFEROL\MAGNESIUM CARBONATE
     Indication: Prophylaxis
     Dosage: 2 DOSAGE FORM, QD
     Route: 048
  7. LANSOPRAZOLE [Concomitant]
     Active Substance: LANSOPRAZOLE
     Indication: Prophylaxis against gastrointestinal ulcer
     Dosage: 15 MILLIGRAM, QD
     Route: 048
  8. DENOSUMAB [Concomitant]
     Active Substance: DENOSUMAB
     Indication: Breast cancer
     Dosage: 120 MILLIGRAM, ONCE/4WEEKS
     Route: 058
     Dates: start: 20220204
  9. LOXOPROFEN SODIUM [Concomitant]
     Active Substance: LOXOPROFEN SODIUM
     Indication: Tumour pain
     Dosage: 60 MILLIGRAM, PRN
     Route: 048
     Dates: start: 20220603
  10. LOXOPROFEN SODIUM [Concomitant]
     Active Substance: LOXOPROFEN SODIUM
     Indication: Arthralgia
  11. LOXOPROFEN SODIUM [Concomitant]
     Active Substance: LOXOPROFEN SODIUM
     Indication: Oropharyngeal pain
  12. SODIUM GUALENATE [Concomitant]
     Active Substance: SODIUM GUALENATE
     Indication: Oropharyngeal pain
     Dosage: UNK, PRN
     Dates: start: 20220603
  13. ORADOL (JAPAN) [Concomitant]
     Indication: Oropharyngeal pain
     Dosage: 1 DOSAGE FORM, PRN
     Route: 049
     Dates: start: 20220607, end: 20220625

REACTIONS (1)
  - Diabetic ketoacidosis [Recovered/Resolved]

NARRATIVE: CASE EVENT DATE: 20220627
